FAERS Safety Report 4390053-1 (Version None)
Quarter: 2004Q2

REPORT INFORMATION
  Report Type: 
  Country: None (occurrence: None)
  Receive Date: 20040630
  Receipt Date: 20040618
  Transmission Date: 20050107
  Serious: Yes (Death)
  Sender: FDA-Public Use
  Company Number: CA-JNJFOC-20040604983

PATIENT
  Age: 40 Year

DRUGS (1)
  1. DURAGESIC [Suspect]
     Indication: INTENTIONAL MISUSE
     Dosage: INTRAVENOUS
     Route: 042

REACTIONS (3)
  - INTENTIONAL MISUSE [None]
  - MEDICATION ERROR [None]
  - OVERDOSE [None]
